FAERS Safety Report 17330417 (Version 1)
Quarter: 2020Q1

REPORT INFORMATION
  Report Type: Spontaneous
  Country: US (occurrence: US)
  Receive Date: 20200128
  Receipt Date: 20200128
  Transmission Date: 20200409
  Serious: No
  Sender: FDA-Public Use
  Company Number: US-SA-2020SA019337

PATIENT
  Age: 80 Year
  Sex: Male

DRUGS (1)
  1. CAPSAICIN. [Suspect]
     Active Substance: CAPSAICIN
     Dosage: UNK

REACTIONS (3)
  - Eye irritation [Unknown]
  - Product adhesion issue [Unknown]
  - Accidental exposure to product [Unknown]
